FAERS Safety Report 7672716-5 (Version None)
Quarter: 2011Q3

REPORT INFORMATION
  Report Type: 
  Country: None (occurrence: None)
  Receive Date: 20110804
  Receipt Date: 20110722
  Transmission Date: 20111222
  Serious: Yes (Life-Threatening, Hospitalization, Other)
  Sender: FDA-Public Use
  Company Number: 2011AP001326

PATIENT
  Age: 45 Year
  Sex: Female

DRUGS (3)
  1. ETANERCEPT [Concomitant]
  2. LEFLUNOMIDE [Suspect]
     Indication: PSORIATIC ARTHROPATHY
     Dosage: 10MG, QD, PO; 20 MG QD, PO
     Route: 048
     Dates: start: 20101115, end: 20110301
  3. LEFLUNOMIDE [Suspect]
     Indication: PSORIATIC ARTHROPATHY
     Dosage: 10MG, QD, PO; 20 MG QD, PO
     Route: 048
     Dates: start: 20110301, end: 20110411

REACTIONS (5)
  - ACUTE RESPIRATORY DISTRESS SYNDROME [None]
  - PULMONARY TOXICITY [None]
  - LUNG INFILTRATION [None]
  - PNEUMONITIS [None]
  - RESPIRATORY FAILURE [None]
